FAERS Safety Report 24146359 (Version 4)
Quarter: 2024Q4

REPORT INFORMATION
  Report Type: Report from Study
  Country: NL (occurrence: NL)
  Receive Date: 20240729
  Receipt Date: 20241024
  Transmission Date: 20250114
  Serious: Yes (Hospitalization)
  Sender: EISAI
  Company Number: NL-Eisai-EC-2024-170875

PATIENT
  Age: 84 Year
  Sex: Male

DRUGS (5)
  1. LENVATINIB [Suspect]
     Active Substance: LENVATINIB
     Indication: Mesothelioma
     Dosage: QD, 7 MONTHS 17 DAYS
     Route: 048
     Dates: start: 20231205, end: 20240729
  2. LENVATINIB [Suspect]
     Active Substance: LENVATINIB
     Dosage: 7/8 DOSE REDUCTION
     Route: 048
     Dates: start: 20240807, end: 20240827
  3. PEMBROLIZUMAB [Suspect]
     Active Substance: PEMBROLIZUMAB
     Indication: Mesothelioma
     Route: 042
     Dates: start: 20231205, end: 20240702
  4. PEMBROLIZUMAB [Suspect]
     Active Substance: PEMBROLIZUMAB
     Route: 042
     Dates: start: 20240807, end: 20240807
  5. APIXABAN [Concomitant]
     Active Substance: APIXABAN
     Dates: start: 202112, end: 20240829

REACTIONS (3)
  - Diarrhoea [Recovered/Resolved]
  - Constipation [Recovered/Resolved]
  - Acute kidney injury [Recovering/Resolving]

NARRATIVE: CASE EVENT DATE: 20240722
